FAERS Safety Report 5011777-9 (Version None)
Quarter: 2006Q2

REPORT INFORMATION
  Report Type: 
  Country: None (occurrence: None)
  Receive Date: 20060524
  Receipt Date: 20060524
  Transmission Date: 20061013
  Serious: Yes (Hospitalization)
  Sender: FDA-Public Use
  Company Number: None

PATIENT
  Age: 78 Year
  Sex: Male
  Weight: 83.8 kg

DRUGS (7)
  1. ATENOLOL [Suspect]
     Indication: ATRIAL FIBRILLATION
     Dosage: 12.5MG DAILY PO
     Route: 048
     Dates: start: 20050609, end: 20060302
  2. ATENOLOL [Suspect]
     Indication: CORONARY ARTERY DISEASE
     Dosage: 12.5MG DAILY PO
     Route: 048
     Dates: start: 20050609, end: 20060302
  3. LEVOTHYROXINE SODIUM [Concomitant]
  4. SIMVASTATIN [Concomitant]
  5. FLUNISOLIDE [Concomitant]
  6. NITROGLYCERIN [Concomitant]
  7. IMIQUIMOD [Concomitant]

REACTIONS (3)
  - DIZZINESS [None]
  - FATIGUE [None]
  - HEART RATE DECREASED [None]
